FAERS Safety Report 9233594 (Version 1)
Quarter: 2013Q2

REPORT INFORMATION
  Report Type: Spontaneous
  Country: US (occurrence: US)
  Receive Date: 20130416
  Receipt Date: 20130416
  Transmission Date: 20140414
  Serious: No
  Sender: FDA-Public Use
  Company Number: US-BANPHARM-20120440

PATIENT
  Age: 52 Year
  Sex: Male
  Weight: 108.86 kg

DRUGS (3)
  1. ALEVE LIQUID GELS 220MG [Suspect]
     Dosage: 2 DF, ONCE,
     Route: 048
     Dates: start: 20121208, end: 20121208
  2. LISINOPRIL [Concomitant]
  3. METFORMIN [Concomitant]

REACTIONS (3)
  - Pruritus [Recovered/Resolved]
  - Urticaria [Recovered/Resolved]
  - Rash [Recovered/Resolved]
